FAERS Safety Report 7927129-5 (Version None)
Quarter: 2011Q4

REPORT INFORMATION
  Report Type: 
  Country: None (occurrence: None)
  Receive Date: 20111118
  Receipt Date: 20111115
  Transmission Date: 20120403
  Serious: Yes (Hospitalization, Congenital Anomaly, Other)
  Sender: FDA-Public Use
  Company Number: US-PFIZER INC-2010128174

PATIENT
  Sex: Male
  Weight: 1.9 kg

DRUGS (4)
  1. ZOLOFT [Suspect]
     Indication: DEPRESSION
  2. METFORMIN [Concomitant]
     Dosage: 500 MG, UNK
     Route: 064
  3. ZOLOFT [Suspect]
     Indication: ANXIETY
     Dosage: 50 MG
     Route: 064
  4. CLOMID [Concomitant]
     Dosage: UNK
     Route: 064

REACTIONS (17)
  - AORTIC STENOSIS [None]
  - AORTIC DILATATION [None]
  - PULMONARY VALVE INCOMPETENCE [None]
  - AUTISM [None]
  - AGGRESSION [None]
  - BRADYCARDIA [None]
  - APNOEA [None]
  - TRICUSPID VALVE INCOMPETENCE [None]
  - LOW SET EARS [None]
  - HEART DISEASE CONGENITAL [None]
  - STRABISMUS CONGENITAL [None]
  - ATTENTION DEFICIT/HYPERACTIVITY DISORDER [None]
  - FOETAL EXPOSURE DURING PREGNANCY [None]
  - AORTIC VALVE INCOMPETENCE [None]
  - MITRAL VALVE INCOMPETENCE [None]
  - LEFT VENTRICULAR HYPERTROPHY [None]
  - SPEECH DISORDER [None]
